FAERS Safety Report 5206760-4 (Version None)
Quarter: 2006Q4

REPORT INFORMATION
  Report Type: 
  Country: None (occurrence: None)
  Receive Date: 20061030
  Receipt Date: 20060926
  Transmission Date: 20070319
  Serious: No
  Sender: FDA-Public Use
  Company Number: 257348

PATIENT
  Age: 56 Year
  Sex: Female

DRUGS (7)
  1. LEVEMIR [Suspect]
     Indication: DIABETES MELLITUS INSULIN-DEPENDENT
     Dosage: 14 IU, QD, SUBCUTANEOUS
     Route: 058
     Dates: start: 20060924
  2. NOVOLOG [Suspect]
     Indication: DIABETES MELLITUS INSULIN-DEPENDENT
     Dosage: SLIDING SCALE, SUBCUTANEOUS
     Route: 058
     Dates: start: 20060924
  3. ZOCOR [Concomitant]
  4. PLAVIX [Concomitant]
  5. ALTACE [Concomitant]
  6. ATENOLOL [Concomitant]
  7. LYRICA [Concomitant]

REACTIONS (1)
  - BLOOD GLUCOSE FLUCTUATION [None]
